FAERS Safety Report 6363972-4 (Version None)
Quarter: 2009Q3

REPORT INFORMATION
  Report Type: 
  Country: None (occurrence: None)
  Receive Date: 20090919
  Receipt Date: 20090714
  Transmission Date: 20100115
  Serious: No
  Sender: FDA-Public Use
  Company Number: US-ABBOTT-09P-163-0585019-00

PATIENT
  Sex: Female
  Weight: 83.082 kg

DRUGS (7)
  1. HUMIRA [Suspect]
     Indication: CROHN'S DISEASE
     Dosage: DAY 1
     Dates: start: 20090624, end: 20090625
  2. HUMIRA [Suspect]
     Dates: start: 20090708
  3. PREDNISONE [Concomitant]
     Indication: DRUG USE FOR UNKNOWN INDICATION
  4. ATIVAN [Concomitant]
     Indication: DRUG USE FOR UNKNOWN INDICATION
  5. ZYPREXA [Concomitant]
     Indication: DEPRESSION
  6. PEXEVA [Concomitant]
     Indication: DEPRESSION
  7. SERZONE [Concomitant]
     Indication: DEPRESSION

REACTIONS (2)
  - INCORRECT DOSE ADMINISTERED [None]
  - INJECTION SITE PAIN [None]
